FAERS Safety Report 8090812-8 (Version None)
Quarter: 2012Q1

REPORT INFORMATION
  Report Type: 
  Country: None (occurrence: None)
  Receive Date: 20120125
  Receipt Date: 20120112
  Transmission Date: 20120608
  Serious: Yes (Hospitalization)
  Sender: FDA-Public Use
  Company Number: JP-2012-10252

PATIENT
  Age: 76 Year
  Sex: Female

DRUGS (4)
  1. LASIX [Concomitant]
  2. ALDACTONE [Concomitant]
  3. FLUITRAN (TRICHLORMETHIAZIDE) TABLET [Concomitant]
  4. SAMSCA [Suspect]
     Indication: CARDIAC FAILURE
     Dosage: 15 MG, QD, ORAL
     Route: 048
     Dates: start: 20120110, end: 20120111

REACTIONS (1)
  - HYPERNATRAEMIA [None]
